FAERS Safety Report 25790124 (Version 1)
Quarter: 2025Q3

REPORT INFORMATION
  Report Type: Spontaneous
  Country: US (occurrence: US)
  Receive Date: 20250911
  Receipt Date: 20250911
  Transmission Date: 20251021
  Serious: No
  Sender: GLENMARK
  Company Number: US-GLENMARK PHARMACEUTICALS-2024GMK094147

PATIENT

DRUGS (4)
  1. GABAPENTIN [Suspect]
     Active Substance: GABAPENTIN
     Indication: Chemotherapy side effect prophylaxis
     Dosage: 6 DOSAGE FORM, OD
     Route: 065
  2. GABAPENTIN [Suspect]
     Active Substance: GABAPENTIN
     Indication: Nerve injury
  3. GABAPENTIN [Suspect]
     Active Substance: GABAPENTIN
     Indication: Chemotherapy side effect prophylaxis
     Dosage: 6 DOSAGE FORM, OD
     Route: 065
  4. GABAPENTIN [Suspect]
     Active Substance: GABAPENTIN
     Indication: Nerve injury

REACTIONS (1)
  - Product use in unapproved indication [Unknown]
